FAERS Safety Report 14546530 (Version 2)
Quarter: 2024Q3

REPORT INFORMATION
  Report Type: Spontaneous
  Country: ES (occurrence: ES)
  Receive Date: 20180219
  Receipt Date: 20240909
  Transmission Date: 20241017
  Serious: Yes (Other)
  Sender: AUROBINDO
  Company Number: ES-AEMPS-322251

PATIENT
  Age: 38 Year
  Sex: Male

DRUGS (1)
  1. TOPIRAMATE [Suspect]
     Active Substance: TOPIRAMATE
     Indication: Product used for unknown indication
     Dosage: UNK
     Route: 065
     Dates: start: 20171218, end: 20180112

REACTIONS (6)
  - Rash pruritic [Unknown]
  - Disorientation [Unknown]
  - Psychomotor skills impaired [Unknown]
  - Confusional state [Unknown]
  - Dry mouth [Unknown]
  - Headache [Unknown]

NARRATIVE: CASE EVENT DATE: 20180112
